FAERS Safety Report 22012727 (Version 1)
Quarter: 2023Q1

REPORT INFORMATION
  Report Type: Spontaneous
  Country: FR (occurrence: FR)
  Receive Date: 20230220
  Receipt Date: 20230220
  Transmission Date: 20230418
  Serious: Yes (Hospitalization)
  Sender: FDA-Public Use
  Company Number: None

PATIENT
  Age: 48 Year
  Sex: Female
  Weight: 45 kg

DRUGS (2)
  1. ALIMTA [Suspect]
     Active Substance: PEMETREXED DISODIUM
     Indication: Lung neoplasm malignant
     Dosage: 500 MG/M2, OTHER, ONCE EVERY THREE WEEKS
     Route: 042
     Dates: start: 20210218, end: 20210921
  2. KEYTRUDA [Suspect]
     Active Substance: PEMBROLIZUMAB
     Indication: Lung neoplasm malignant
     Dosage: 200 MG, OTHER, ONCE EVERY THREE WEEKS
     Route: 042
     Dates: start: 20210218, end: 20210921

REACTIONS (1)
  - Thyroiditis acute [Recovering/Resolving]

NARRATIVE: CASE EVENT DATE: 20211008
